FAERS Safety Report 13061877 (Version 2)
Quarter: 2019Q1

REPORT INFORMATION
  Report Type: Spontaneous
  Country: CN (occurrence: CN)
  Receive Date: 20161226
  Receipt Date: 20190214
  Transmission Date: 20190417
  Serious: Yes (Other)
  Sender: FDA-Public Use
  Company Number: CN-JNJFOC-20161212156

PATIENT
  Age: 3 Month
  Sex: Female
  Weight: 6 kg

DRUGS (2)
  1. MOTRIN [Suspect]
     Active Substance: IBUPROFEN
     Indication: PYREXIA
     Route: 048
     Dates: start: 201612
  2. MOTRIN [Suspect]
     Active Substance: IBUPROFEN
     Indication: COUGH
     Route: 048
     Dates: start: 201612

REACTIONS (10)
  - Anaphylactic shock [Recovering/Resolving]
  - Slow response to stimuli [Recovering/Resolving]
  - Dysphoria [Recovering/Resolving]
  - Heart rate increased [Recovering/Resolving]
  - Product use in unapproved indication [Recovering/Resolving]
  - Pallor [Recovering/Resolving]
  - Off label use [Recovering/Resolving]
  - Cyanosis [Recovering/Resolving]
  - Dyspnoea [Recovering/Resolving]
  - Muscle twitching [Recovering/Resolving]

NARRATIVE: CASE EVENT DATE: 201612
